FAERS Safety Report 8384546-X (Version None)
Quarter: 2012Q2

REPORT INFORMATION
  Report Type: 
  Country: None (occurrence: None)
  Receive Date: 20120524
  Receipt Date: 20120517
  Transmission Date: 20120825
  Serious: Yes (Other)
  Sender: FDA-Public Use
  Company Number: US-JNJFOC-20120515421

PATIENT
  Sex: Female

DRUGS (7)
  1. ESTRADIOL [Concomitant]
     Indication: HORMONE REPLACEMENT THERAPY
     Route: 048
     Dates: start: 20040101
  2. LEVOTHYROXINE SODIUM [Concomitant]
     Indication: THYROID DISORDER
     Route: 048
     Dates: start: 19710101
  3. XARELTO [Suspect]
     Indication: ATRIAL FIBRILLATION
     Route: 048
     Dates: start: 20120101
  4. FUROSEMIDE [Concomitant]
     Indication: FLUID RETENTION
     Route: 048
  5. DIGOXIN [Concomitant]
     Indication: CARDIAC DISORDER
     Route: 048
     Dates: start: 20090101
  6. DILTIAZEM [Concomitant]
     Indication: CARDIAC DISORDER
     Route: 048
     Dates: start: 20090101
  7. SPIRONOLACTONE [Concomitant]
     Indication: FLUID RETENTION
     Route: 048
     Dates: start: 20120101

REACTIONS (12)
  - HYPOKINESIA [None]
  - HYPOTENSION [None]
  - NEPHROLITHIASIS [None]
  - FEELING COLD [None]
  - DIZZINESS [None]
  - BACK PAIN [None]
  - PAIN IN EXTREMITY [None]
  - HEADACHE [None]
  - NAUSEA [None]
  - DIARRHOEA [None]
  - INITIAL INSOMNIA [None]
  - MALAISE [None]
